FAERS Safety Report 25905362 (Version 3)
Quarter: 2025Q4

REPORT INFORMATION
  Report Type: Spontaneous
  Country: US (occurrence: US)
  Receive Date: 20251010
  Receipt Date: 20251123
  Transmission Date: 20260117
  Serious: No
  Sender: SANOFI AVENTIS
  Company Number: US-SA-2025SA300446

PATIENT
  Age: 61 Year
  Sex: Male

DRUGS (1)
  1. DUPIXENT [Suspect]
     Active Substance: DUPILUMAB
     Indication: Nasal polyps
     Dosage: 300 MG, QOW
     Route: 058
     Dates: start: 202506, end: 202510

REACTIONS (9)
  - Sinus headache [Unknown]
  - Condition aggravated [Unknown]
  - Pain [Unknown]
  - Blood pressure increased [Recovering/Resolving]
  - Illness [Unknown]
  - Sleep disorder due to a general medical condition [Unknown]
  - Nasal polyps [Unknown]
  - Sinus congestion [Unknown]
  - Condition aggravated [Unknown]

NARRATIVE: CASE EVENT DATE: 20250101
